FAERS Safety Report 8964844 (Version 2)
Quarter: 2013Q1

REPORT INFORMATION
  Report Type: Spontaneous
  Country: US (occurrence: US)
  Receive Date: 20121213
  Receipt Date: 20130120
  Transmission Date: 20140127
  Serious: No
  Sender: FDA-Public Use
  Company Number: US-009507513-1212USA003011

PATIENT
  Age: 20 Year
  Sex: 0
  Weight: 87.75 kg

DRUGS (1)
  1. IMPLANON [Suspect]
     Indication: CONTRACEPTION
     Dosage: EVERY 3 YEARS
     Route: 059
     Dates: start: 20120830

REACTIONS (4)
  - Headache [Unknown]
  - Menstruation irregular [Unknown]
  - Asthenia [Unknown]
  - Menorrhagia [Unknown]
